FAERS Safety Report 10243611 (Version 3)
Quarter: 2014Q4

REPORT INFORMATION
  Report Type: Spontaneous
  Country: US (occurrence: None)
  Receive Date: 20140616
  Receipt Date: 20141022
  Transmission Date: 20150528
  Serious: Yes (Death, Hospitalization)
  Sender: FDA-Public Use
  Company Number: UNT-2014-001226

PATIENT
  Age: 71 Year
  Sex: Male
  Weight: 75.8 kg

DRUGS (5)
  1. REMODULIN [Suspect]
     Active Substance: TREPROSTINIL
     Indication: COR PULMONALE CHRONIC
     Route: 041
     Dates: start: 20120616
  2. LETAIRIS [Concomitant]
     Active Substance: AMBRISENTAN
  3. ALLOPURINOL (ALLOPURINOL) [Suspect]
     Active Substance: ALLOPURINOL
     Indication: PRODUCT USED FOR UNKNOWN INDICATION
  4. SILDENAFIL (SILDENAFIL) [Concomitant]
     Active Substance: SILDENAFIL
  5. LASIX [Concomitant]
     Active Substance: FUROSEMIDE

REACTIONS (5)
  - Gout [None]
  - Respiratory failure [None]
  - Renal failure [None]
  - Drug hypersensitivity [None]
  - Rash [None]

NARRATIVE: CASE EVENT DATE: 20140521
